FAERS Safety Report 25013191 (Version 1)
Quarter: 2025Q1

REPORT INFORMATION
  Report Type: Spontaneous
  Country: FR (occurrence: FR)
  Receive Date: 20250226
  Receipt Date: 20250226
  Transmission Date: 20250409
  Serious: Yes (Hospitalization)
  Sender: HELSINN HEALTHCARE
  Company Number: None

PATIENT
  Age: 65 Year
  Sex: Female

DRUGS (13)
  1. AKYNZEO (NETUPITANT\PALONOSETRON HYDROCHLORIDE) [Suspect]
     Active Substance: NETUPITANT\PALONOSETRON HYDROCHLORIDE
     Indication: Product used for unknown indication
     Route: 048
     Dates: start: 20241121, end: 20241121
  2. AKYNZEO (NETUPITANT\PALONOSETRON HYDROCHLORIDE) [Suspect]
     Active Substance: NETUPITANT\PALONOSETRON HYDROCHLORIDE
     Route: 048
     Dates: start: 20250109, end: 20250109
  3. AMOXICILLIN [Suspect]
     Active Substance: AMOXICILLIN
     Indication: Dermo-hypodermitis
     Dosage: 3 GRAM, QD
     Route: 048
     Dates: start: 20241108, end: 20241113
  4. AMOXICILLIN [Suspect]
     Active Substance: AMOXICILLIN
     Dosage: 4 GRAM, QD
     Route: 048
     Dates: start: 20241113, end: 20241118
  5. AMOXICILLIN [Suspect]
     Active Substance: AMOXICILLIN
     Dosage: 4 GRAM, QD
     Route: 048
     Dates: start: 20241127, end: 20241204
  6. CLINDAMYCIN HYDROCHLORIDE [Suspect]
     Active Substance: CLINDAMYCIN HYDROCHLORIDE
     Indication: Dermo-hypodermitis
     Dosage: 1200 MILLIGRAM, QD
     Route: 048
     Dates: start: 20241130, end: 20241204
  7. CLINDAMYCIN HYDROCHLORIDE [Suspect]
     Active Substance: CLINDAMYCIN HYDROCHLORIDE
     Dosage: 1800 MILLIGRAM, QD
     Route: 048
     Dates: start: 20241204, end: 20241211
  8. AUGMENTIN [Suspect]
     Active Substance: AMOXICILLIN\CLAVULANATE POTASSIUM
     Indication: Dermo-hypodermitis
     Dosage: 3 GRAM, QD
     Route: 048
     Dates: start: 20241204, end: 20241211
  9. KEYTRUDA [Suspect]
     Active Substance: PEMBROLIZUMAB
     Indication: Lung adenocarcinoma
     Route: 042
     Dates: start: 20241121, end: 20241121
  10. KEYTRUDA [Suspect]
     Active Substance: PEMBROLIZUMAB
     Route: 042
     Dates: start: 20250109, end: 20250109
  11. PEMETREXED [Suspect]
     Active Substance: PEMETREXED
     Indication: Lung adenocarcinoma
     Route: 042
     Dates: start: 20241121, end: 20241121
  12. PEMETREXED [Suspect]
     Active Substance: PEMETREXED
     Route: 042
     Dates: start: 20250109, end: 20250109
  13. IOMERON [Suspect]
     Active Substance: IOMEPROL
     Indication: Computerised tomogram
     Route: 042
     Dates: start: 20250102, end: 20250102

REACTIONS (1)
  - Rash maculo-papular [Recovered/Resolved]
